FAERS Safety Report 20450356 (Version 1)
Quarter: 2022Q1

REPORT INFORMATION
  Report Type: Spontaneous
  Country: US (occurrence: None)
  Receive Date: 20220208
  Receipt Date: 20220208
  Transmission Date: 20220423
  Serious: Yes (Life-Threatening, Hospitalization)
  Sender: FDA-Public Use
  Company Number: None

PATIENT
  Age: 33 Year
  Sex: Female
  Weight: 48.08 kg

DRUGS (1)
  1. AZO URINARY PAIN RELIEF MAXIMUM STRENGTH [Suspect]
     Active Substance: PHENAZOPYRIDINE HYDROCHLORIDE
     Indication: Vulvovaginal burning sensation
     Dosage: FREQUENCY : EVERY 8 HOURS;?
     Dates: start: 20220203, end: 20220205

REACTIONS (4)
  - Pallor [None]
  - Haemoglobin decreased [None]
  - Ocular icterus [None]
  - Transfusion [None]

NARRATIVE: CASE EVENT DATE: 20220206
